FAERS Safety Report 7541786-7 (Version None)
Quarter: 2011Q2

REPORT INFORMATION
  Report Type: 
  Country: None (occurrence: None)
  Receive Date: 20110613
  Receipt Date: 20110603
  Transmission Date: 20111010
  Serious: Yes (Hospitalization)
  Sender: FDA-Public Use
  Company Number: JP-JNJFOC-20101103131

PATIENT
  Sex: Female

DRUGS (14)
  1. LUPRAC [Concomitant]
     Route: 048
     Dates: start: 20100425
  2. MAGMITT [Concomitant]
     Route: 048
     Dates: start: 20100425
  3. GASMOTIN [Concomitant]
     Route: 048
     Dates: start: 20100425
  4. TOPIRAMATE [Suspect]
     Route: 048
     Dates: start: 20101020
  5. ALOSENN [Concomitant]
     Route: 048
     Dates: start: 20100425
  6. PHENYTOIN [Concomitant]
     Route: 048
  7. DIAZEPAM [Concomitant]
     Route: 065
     Dates: start: 20100422, end: 20100422
  8. RABEPRAZOLE SODIUM [Concomitant]
     Route: 048
     Dates: start: 20100425
  9. WARFARIN SODIUM [Concomitant]
     Route: 048
     Dates: start: 20100425
  10. BONOTEO [Concomitant]
     Route: 048
     Dates: start: 20100812
  11. TOPIRAMATE [Suspect]
     Indication: EPILEPSY
     Route: 048
     Dates: start: 20100423, end: 20101019
  12. CEFTRIAXONE SODIUM [Concomitant]
     Route: 065
     Dates: start: 20100427, end: 20100501
  13. CELECOXIB [Concomitant]
     Route: 048
     Dates: start: 20100812
  14. ALFAROL [Concomitant]
     Route: 048
     Dates: start: 20100812

REACTIONS (1)
  - HEPATIC FUNCTION ABNORMAL [None]
